FAERS Safety Report 4822981-4 (Version None)
Quarter: 2005Q4

REPORT INFORMATION
  Report Type: 
  Country: None (occurrence: None)
  Receive Date: 20051108
  Receipt Date: 20051102
  Transmission Date: 20060501
  Serious: Yes (Hospitalization)
  Sender: FDA-Public Use
  Company Number: US-JNJFOC-20051101462

PATIENT
  Sex: Female
  Weight: 79.38 kg

DRUGS (2)
  1. DURAGESIC-100 [Suspect]
     Route: 062
  2. ALTACE [Concomitant]
     Route: 048

REACTIONS (2)
  - CHEST PAIN [None]
  - PAIN IN EXTREMITY [None]
